FAERS Safety Report 9787558 (Version 2)
Quarter: 2014Q1

REPORT INFORMATION
  Report Type: Spontaneous
  Country: IT (occurrence: IT)
  Receive Date: 20131230
  Receipt Date: 20140128
  Transmission Date: 20141002
  Serious: Yes (Other)
  Sender: FDA-Public Use
  Company Number: IT-ACCORD-021001

PATIENT
  Age: 77 Year
  Sex: Female
  Weight: 45 kg

DRUGS (6)
  1. GEMCITABINE/GEMCITABINE HYDROCHLORIDE [Suspect]
     Indication: LUNG NEOPLASM MALIGNANT
     Route: 042
     Dates: start: 20131018, end: 20131207
  2. SOLDESAM [Concomitant]
  3. PERIDON [Concomitant]
  4. PLAUNAZIDE [Concomitant]
     Indication: HYPERTENSION
     Route: 048
  5. PARIET [Concomitant]
     Route: 048
  6. RANITIDINE [Concomitant]

REACTIONS (1)
  - Leukopenia [Unknown]
